FAERS Safety Report 22158803 (Version 4)
Quarter: 2023Q2

REPORT INFORMATION
  Report Type: Spontaneous
  Country: US (occurrence: US)
  Receive Date: 20230331
  Receipt Date: 20230623
  Transmission Date: 20230722
  Serious: Yes (Hospitalization, Other)
  Sender: FDA-Public Use
  Company Number: US-BEH-2023156878

PATIENT
  Age: 55 Year
  Sex: Male

DRUGS (2)
  1. HIZENTRA [Suspect]
     Active Substance: HUMAN IMMUNOGLOBULIN G
     Indication: Immunodeficiency common variable
     Dosage: 8 GRAM, QW
     Route: 058
     Dates: start: 202201
  2. HIZENTRA [Suspect]
     Active Substance: HUMAN IMMUNOGLOBULIN G
     Dosage: 8 GRAMS QW
     Route: 058
     Dates: start: 202205

REACTIONS (23)
  - Nephrolithiasis [Unknown]
  - Urine output decreased [Unknown]
  - Dyspnoea [Unknown]
  - Fatigue [Unknown]
  - Pain [Unknown]
  - Headache [Unknown]
  - Swelling [Unknown]
  - Injection site pain [Unknown]
  - Infusion site extravasation [Unknown]
  - Wrong technique in product usage process [Unknown]
  - No adverse event [Unknown]
  - Incorrect dose administered [Unknown]
  - Renal colic [Unknown]
  - Nephrolithiasis [Unknown]
  - Nephrostomy [Unknown]
  - Decreased appetite [Unknown]
  - Urine output decreased [Unknown]
  - Dyspnoea [Unknown]
  - Pain [Unknown]
  - Headache [Unknown]
  - Urine output decreased [Unknown]
  - Decreased appetite [Unknown]
  - Headache [Unknown]

NARRATIVE: CASE EVENT DATE: 20230401
